FAERS Safety Report 5974299-4 (Version None)
Quarter: 2008Q4

REPORT INFORMATION
  Report Type: 
  Country: None (occurrence: None)
  Receive Date: 20081201
  Receipt Date: 20081125
  Transmission Date: 20090506
  Serious: Yes (Other)
  Sender: FDA-Public Use
  Company Number: AU-PFIZER INC-2008069167

PATIENT
  Sex: Male

DRUGS (10)
  1. CHAMPIX [Suspect]
     Indication: SMOKING CESSATION THERAPY
     Route: 048
     Dates: start: 20080515, end: 20080615
  2. ACETYLSALICYLIC ACID SRT [Concomitant]
  3. ADALAT [Concomitant]
     Route: 048
  4. ASPIRIN [Concomitant]
  5. COVERSYL [Concomitant]
     Route: 048
  6. CIPRAMIL [Concomitant]
     Route: 048
  7. DRIXINE [Concomitant]
     Route: 045
  8. NEXIUM [Concomitant]
     Route: 048
  9. NITRO-DUR [Concomitant]
     Dosage: TEXT:5MG/24 HOURS ONE DAILY
     Route: 062
  10. HYDROCHLOROTHIAZIDE [Concomitant]
     Route: 048

REACTIONS (4)
  - DYSARTHRIA [None]
  - RESTLESSNESS [None]
  - SPEECH DISORDER [None]
  - TREMOR [None]
